FAERS Safety Report 4575698-8 (Version None)
Quarter: 2005Q1

REPORT INFORMATION
  Report Type: 
  Country: None (occurrence: None)
  Receive Date: 20050128
  Receipt Date: 20050128
  Transmission Date: 20050727
  Serious: Yes (Other)
  Sender: FDA-Public Use
  Company Number: None

PATIENT
  Sex: Female
  Weight: 87.5442 kg

DRUGS (2)
  1. NEURONTIN [Suspect]
     Indication: CHEST PAIN
     Dosage: 300 MG TWO TID
  2. NEURONTIN [Suspect]
     Indication: TREMOR
     Dosage: 300 MG TWO TID

REACTIONS (4)
  - DRUG INEFFECTIVE [None]
  - DRUG TOLERANCE DECREASED [None]
  - PARAESTHESIA [None]
  - PHARMACEUTICAL PRODUCT COMPLAINT [None]
